FAERS Safety Report 6421845-2 (Version None)
Quarter: 2009Q4

REPORT INFORMATION
  Report Type: 
  Country: None (occurrence: None)
  Receive Date: 20091030
  Receipt Date: 20091026
  Transmission Date: 20100525
  Serious: Yes (Death, Other)
  Sender: FDA-Public Use
  Company Number: LT-CELGENEUS-234-21880-09092120

PATIENT
  Sex: Female
  Weight: 74 kg

DRUGS (5)
  1. REVLIMID [Suspect]
     Route: 048
     Dates: start: 20090904, end: 20090925
  2. FRAXIPARINE [Concomitant]
     Indication: PROPHYLAXIS
     Route: 065
     Dates: start: 20090901, end: 20090901
  3. OMEPRAZOLE [Concomitant]
     Indication: PROPHYLAXIS
     Route: 065
     Dates: start: 20090901, end: 20090901
  4. TMP-SM2 [Concomitant]
     Indication: PROPHYLAXIS
     Route: 065
     Dates: start: 20090901, end: 20090901
  5. DEXAMETHASONE [Concomitant]
     Route: 065
     Dates: start: 20090901, end: 20090901

REACTIONS (3)
  - CARDIOVASCULAR INSUFFICIENCY [None]
  - INFECTION [None]
  - MULTIPLE MYELOMA [None]
